FAERS Safety Report 24416766 (Version 1)
Quarter: 2024Q4

REPORT INFORMATION
  Report Type: Spontaneous
  Country: US (occurrence: US)
  Receive Date: 20241009
  Receipt Date: 20241009
  Transmission Date: 20250115
  Serious: No
  Sender: CB FLEET
  Company Number: US-C. B. Fleet Co., Inc.-202310-US-003040

PATIENT
  Sex: Female

DRUGS (2)
  1. MONISTAT 1 COMBINATION PACK [Suspect]
     Active Substance: MICONAZOLE NITRATE
     Indication: Fungal infection
     Dosage: USED OVULE AND THEN USED CREAM 3 TIMES
  2. TINIDAZOLE [Concomitant]
     Active Substance: TINIDAZOLE

REACTIONS (5)
  - Abdominal pain [Recovering/Resolving]
  - Pelvic pain [Recovering/Resolving]
  - Vulvovaginal pain [Recovering/Resolving]
  - Condition aggravated [Recovering/Resolving]
  - Skin erosion [Recovering/Resolving]
